FAERS Safety Report 9198052 (Version 2)
Quarter: 2013Q2

REPORT INFORMATION
  Report Type: Spontaneous
  Country: US (occurrence: US)
  Receive Date: 20130328
  Receipt Date: 20130415
  Transmission Date: 20140414
  Serious: Yes (Hospitalization, Disabling)
  Sender: FDA-Public Use
  Company Number: US-B.I. PHARMACEUTICALS,INC./RIDGEFIELD-2013-BI-07932BP

PATIENT
  Age: 71 Year
  Sex: Female
  Weight: 98 kg

DRUGS (13)
  1. SPIRIVA [Suspect]
     Indication: CHRONIC OBSTRUCTIVE PULMONARY DISEASE
     Dosage: 18 MCG
     Route: 055
     Dates: start: 2004
  2. SPIRIVA [Suspect]
     Dosage: 18 MCG
     Route: 048
     Dates: start: 20130321, end: 20130321
  3. DIFLUCAN [Concomitant]
     Indication: FUNGAL INFECTION
     Dosage: 100 MG
     Route: 048
  4. XANAX [Concomitant]
     Indication: ANXIETY
     Route: 048
  5. PROTONIX [Concomitant]
     Indication: GASTRIC DISORDER
     Dosage: 40 MG
     Route: 048
  6. LASIX [Concomitant]
     Indication: FLUID RETENTION
     Dosage: 40 MG
     Route: 048
  7. PREDNISOLONE ACETATE 1 PERCENT [Concomitant]
  8. ATROPINE 1 PERCENT [Concomitant]
  9. LOSARTAN [Concomitant]
     Indication: HYPERTENSION
     Dosage: 100 MG
     Route: 048
  10. NORVASC [Concomitant]
     Indication: HYPERTENSION
     Dosage: 10 MG
     Route: 048
  11. ADVAIR [Concomitant]
     Indication: CHRONIC OBSTRUCTIVE PULMONARY DISEASE
     Route: 055
     Dates: start: 2004
  12. NATEGLINIDE [Concomitant]
     Indication: BLOOD GLUCOSE INCREASED
     Dosage: 120 MG
     Route: 048
  13. SINGULAIR [Concomitant]
     Indication: ASTHMA
     Dosage: 10 MG
     Route: 048

REACTIONS (13)
  - Blindness unilateral [Not Recovered/Not Resolved]
  - Chronic obstructive pulmonary disease [Recovered/Resolved]
  - Chronic obstructive pulmonary disease [Recovered/Resolved]
  - Staphylococcal infection [Recovered/Resolved]
  - Wrong technique in drug usage process [Recovered/Resolved]
  - Cataract [Not Recovered/Not Resolved]
  - Chronic obstructive pulmonary disease [Recovered/Resolved]
  - Pulmonary mass [Recovered/Resolved]
  - Impaired healing [Not Recovered/Not Resolved]
  - Aphonia [Recovered/Resolved]
  - Gastrooesophageal reflux disease [Not Recovered/Not Resolved]
  - Cataract [Not Recovered/Not Resolved]
  - Dry mouth [Unknown]
